FAERS Safety Report 17292780 (Version 2)
Quarter: 2020Q1

REPORT INFORMATION
  Report Type: Spontaneous
  Country: US (occurrence: US)
  Receive Date: 20200121
  Receipt Date: 20200219
  Transmission Date: 20200409
  Serious: Yes (Other)
  Sender: FDA-Public Use
  Company Number: US-BAYER-2020-004370

PATIENT
  Age: 38 Year
  Sex: Female

DRUGS (2)
  1. MIRENA [Suspect]
     Active Substance: LEVONORGESTREL
     Indication: CONTRACEPTION
     Dosage: 20 MCG/24HR, CONT
     Route: 015
     Dates: start: 20200108
  2. MIRENA [Suspect]
     Active Substance: LEVONORGESTREL
     Indication: CONTRACEPTION
     Dosage: 20 MCG/24HR, CONT
     Route: 015
     Dates: start: 20190222, end: 20200108

REACTIONS (12)
  - Procedural haemorrhage [None]
  - Vaginal discharge [None]
  - Abdominal pain [None]
  - Procedural pain [None]
  - Ovarian cyst [None]
  - Post procedural discomfort [None]
  - Device dislocation [Recovered/Resolved]
  - Dyspareunia [None]
  - Pelvic pain [None]
  - Device malfunction [None]
  - Night sweats [None]
  - Hydrometra [None]

NARRATIVE: CASE EVENT DATE: 20200108
